FAERS Safety Report 24210219 (Version 1)
Quarter: 2024Q3

REPORT INFORMATION
  Report Type: Spontaneous
  Country: US (occurrence: US)
  Receive Date: 20240814
  Receipt Date: 20240814
  Transmission Date: 20241017
  Serious: No
  Sender: CHURCH & DWIGHT
  Company Number: US-ChurchDwight-2024-CDW-01310

PATIENT

DRUGS (1)
  1. ZICAM COLD REMEDY NASAL SWABS (HOMEOPATHICS) [Suspect]
     Active Substance: HOMEOPATHICS\ZINC ACETATE\ZINC GLUCONATE
     Indication: Nasopharyngitis
     Route: 045

REACTIONS (5)
  - Anosmia [Unknown]
  - Headache [Unknown]
  - Rhinalgia [Unknown]
  - Epistaxis [Unknown]
  - Sinusitis [Unknown]
